FAERS Safety Report 20179392 (Version 1)
Quarter: 2021Q4

REPORT INFORMATION
  Report Type: Spontaneous
  Country: US (occurrence: US)
  Receive Date: 20211214
  Receipt Date: 20211214
  Transmission Date: 20220303
  Serious: No
  Sender: FDA-Public Use
  Company Number: US-AMGEN-USASP2021196717

PATIENT
  Age: 59 Year
  Sex: Male

DRUGS (5)
  1. KYPROLIS [Suspect]
     Active Substance: CARFILZOMIB
     Indication: Plasma cell myeloma
     Dosage: 50 MILLIGRAM, QWK
     Route: 042
  2. KYPROLIS [Suspect]
     Active Substance: CARFILZOMIB
     Dosage: 10 MILLIGRAM
     Route: 042
     Dates: start: 20211208, end: 20211208
  3. KYPROLIS [Suspect]
     Active Substance: CARFILZOMIB
     Dosage: 30 MILLIGRAM
     Route: 042
     Dates: start: 20211208, end: 20211208
  4. NASAL [CHLORPHENAMINE MALEATE;NAPHAZOLINE NITRATE] [Concomitant]
     Dosage: UNK
  5. DARZALEX [Concomitant]
     Active Substance: DARATUMUMAB
     Indication: Plasma cell myeloma
     Dosage: UNK

REACTIONS (2)
  - Oropharyngeal pain [Unknown]
  - Nasal congestion [Unknown]

NARRATIVE: CASE EVENT DATE: 20210101
